FAERS Safety Report 14466677 (Version 1)
Quarter: 2018Q1

REPORT INFORMATION
  Report Type: Other
  Country: US (occurrence: US)
  Receive Date: 20180131
  Receipt Date: 20180131
  Transmission Date: 20180509
  Serious: No
  Sender: FDA-Public Use
  Company Number: US-ACORDA-ACO_137300_2017

PATIENT
  Age: 52 Year
  Sex: Male

DRUGS (1)
  1. AMPYRA [Suspect]
     Active Substance: DALFAMPRIDINE
     Indication: PRODUCT USED FOR UNKNOWN INDICATION
     Dosage: 10 MG, Q 12 HRS
     Route: 065
     Dates: end: 20170422

REACTIONS (7)
  - Gait disturbance [Unknown]
  - Peripheral swelling [Unknown]
  - Decreased appetite [Unknown]
  - Weight decreased [Unknown]
  - Hypoaesthesia [Unknown]
  - Sensory loss [Unknown]
  - Skin tightness [Unknown]

NARRATIVE: CASE EVENT DATE: 201612
